FAERS Safety Report 5567306-4 (Version None)
Quarter: 2007Q4

REPORT INFORMATION
  Report Type: 
  Country: None (occurrence: None)
  Receive Date: 20071219
  Receipt Date: 20071004
  Transmission Date: 20080405
  Serious: No
  Sender: FDA-Public Use
  Company Number: US-ABBOTT-07P-163-0416544-00

PATIENT
  Sex: Male
  Weight: 91 kg

DRUGS (2)
  1. DILAUDID [Suspect]
     Indication: BACK PAIN
     Route: 048
     Dates: start: 20020101
  2. DILAUDID [Suspect]
     Indication: PAIN IN EXTREMITY

REACTIONS (2)
  - DEPENDENCE [None]
  - DRUG INEFFECTIVE [None]
